FAERS Safety Report 20110645 (Version 2)
Quarter: 2021Q4

REPORT INFORMATION
  Report Type: Spontaneous
  Country: HR (occurrence: HR)
  Receive Date: 20211124
  Receipt Date: 20211208
  Transmission Date: 20220303
  Serious: Yes (Other)
  Sender: FDA-Public Use
  Company Number: None

PATIENT
  Age: 13 Year
  Sex: Female

DRUGS (4)
  1. QUETIAPINE [Suspect]
     Active Substance: QUETIAPINE
     Dosage: 250 MG,ADR ADEQUATELY LABELLED: YES
     Route: 048
     Dates: start: 20210628, end: 20210628
  2. SERTRALINE [Suspect]
     Active Substance: SERTRALINE HYDROCHLORIDE
     Dosage: 750 MG,ADR ADEQUATELY LABELLED: SOMNOLENCE ,ADR NOT ADEQUATELY LABELLED: BLURRED VISION
     Route: 048
     Dates: start: 20210628, end: 20210628
  3. ARIPIPRAZOLE [Suspect]
     Active Substance: ARIPIPRAZOLE
     Dosage: 90 MG,ADR ADEQUATELY LABELLED: YES
     Route: 048
     Dates: start: 20210628, end: 20210628
  4. DIAZEPAM [Suspect]
     Active Substance: DIAZEPAM
     Dosage: 100 MG,ADR ADEQUATELY LABELLED: SOMNOLENCE ,ADR NOT ADEQUATELY LABELLED: BLURRED VISION
     Route: 048
     Dates: start: 20210628, end: 20210628

REACTIONS (4)
  - Vision blurred [Unknown]
  - Suicide attempt [Unknown]
  - Intentional overdose [Unknown]
  - Somnolence [Unknown]

NARRATIVE: CASE EVENT DATE: 20210628
